FAERS Safety Report 19101334 (Version 1)
Quarter: 2021Q2

REPORT INFORMATION
  Report Type: Report from Study
  Country: US (occurrence: US)
  Receive Date: 20210407
  Receipt Date: 20210407
  Transmission Date: 20210717
  Serious: No
  Sender: FDA-Public Use
  Company Number: NVSC2021US072223

PATIENT
  Sex: Male

DRUGS (1)
  1. COSENTYX [Suspect]
     Active Substance: SECUKINUMAB
     Indication: PSORIASIS
     Dosage: 150 MG, ONCE WEEKLY FOR 5 WEEKS, THEN ONCE
     Route: 058

REACTIONS (2)
  - Product dose omission issue [Unknown]
  - Psoriasis [Unknown]
